FAERS Safety Report 10221123 (Version 1)
Quarter: 2014Q2

REPORT INFORMATION
  Report Type: Spontaneous
  Country: US (occurrence: US)
  Receive Date: 20140606
  Receipt Date: 20140606
  Transmission Date: 20141212
  Serious: No
  Sender: FDA-Public Use
  Company Number: US-TEVA-485200USA

PATIENT
  Sex: Male
  Weight: 72.64 kg

DRUGS (2)
  1. AZILECT [Suspect]
     Indication: PARKINSON^S DISEASE
     Route: 048
  2. CARBIDOPA [Concomitant]
     Indication: PARKINSON^S DISEASE

REACTIONS (4)
  - Dysphagia [Unknown]
  - Weight decreased [Unknown]
  - Decreased appetite [Unknown]
  - Dizziness [Unknown]
